FAERS Safety Report 6410773-4 (Version None)
Quarter: 2009Q4

REPORT INFORMATION
  Report Type: 
  Country: None (occurrence: None)
  Receive Date: 20091020
  Receipt Date: 20091020
  Transmission Date: 20100525
  Serious: Yes (Life-Threatening, Hospitalization, Other)
  Sender: FDA-Public Use
  Company Number: None

PATIENT
  Age: 39 Year
  Sex: Female
  Weight: 52.1637 kg

DRUGS (1)
  1. LEVAQUIN [Suspect]
     Indication: CYSTITIS
     Dosage: 250 MG 1X DAY FOR 10 DAYS PO
     Route: 048
     Dates: start: 20070222, end: 20070302

REACTIONS (19)
  - ASTHENIA [None]
  - BLOOD CHOLESTEROL DECREASED [None]
  - EXERCISE TOLERANCE DECREASED [None]
  - EXTRASYSTOLES [None]
  - FATIGUE [None]
  - GASTROINTESTINAL DISORDER [None]
  - HEADACHE [None]
  - HEART RATE IRREGULAR [None]
  - HYPOKALAEMIA [None]
  - MUSCLE ATROPHY [None]
  - MUSCULAR WEAKNESS [None]
  - PARAESTHESIA [None]
  - PRESYNCOPE [None]
  - PYREXIA [None]
  - TENDONITIS [None]
  - TINNITUS [None]
  - VIRAL INFECTION [None]
  - VITREOUS FLOATERS [None]
  - WEIGHT BEARING DIFFICULTY [None]
